FAERS Safety Report 7742739-6 (Version None)
Quarter: 2011Q3

REPORT INFORMATION
  Report Type: 
  Country: None (occurrence: None)
  Receive Date: 20110912
  Receipt Date: 20110905
  Transmission Date: 20111222
  Serious: Yes (Other)
  Sender: FDA-Public Use
  Company Number: HU-PFIZER INC-2011209025

PATIENT
  Age: 68 Year
  Sex: Female
  Weight: 70 kg

DRUGS (9)
  1. THEOPHYLLINE [Concomitant]
     Dosage: UNK
  2. DICLOFENAC SODIUM [Concomitant]
     Dosage: UNK
  3. MILURIT [Concomitant]
     Dosage: UNK
  4. MELOXICAM [Concomitant]
     Dosage: UNK
  5. METFORMIN [Concomitant]
     Dosage: UNK
  6. VALSARTAN [Concomitant]
     Dosage: UNK
  7. HUMULIN R [Concomitant]
     Dosage: UNK
  8. LYRICA [Suspect]
     Dosage: 75 MG, 2X/DAY
     Dates: start: 20110814, end: 20110822
  9. TOLPERISONE [Concomitant]
     Dosage: UNK

REACTIONS (3)
  - EYE SWELLING [None]
  - HYPERTENSION [None]
  - OEDEMA PERIPHERAL [None]
